FAERS Safety Report 21186227 (Version 1)
Quarter: 2022Q3

REPORT INFORMATION
  Report Type: Spontaneous
  Country: AT (occurrence: AT)
  Receive Date: 20220808
  Receipt Date: 20220808
  Transmission Date: 20221027
  Serious: Yes (Other)
  Sender: FDA-Public Use
  Company Number: AT-PFM-2022-06075

PATIENT
  Age: 62 Year
  Sex: Female

DRUGS (4)
  1. BRAFTOVI [Suspect]
     Active Substance: ENCORAFENIB
     Indication: Non-small cell lung cancer
     Dosage: UNK
     Route: 065
     Dates: start: 20220621, end: 202207
  2. BRAFTOVI [Suspect]
     Active Substance: ENCORAFENIB
     Indication: Off label use
  3. MEKTOVI [Suspect]
     Active Substance: BINIMETINIB
     Indication: Non-small cell lung cancer
     Dosage: UNK
     Route: 065
     Dates: start: 20220621, end: 202207
  4. MEKTOVI [Suspect]
     Active Substance: BINIMETINIB
     Indication: Off label use

REACTIONS (4)
  - Pneumonia [Unknown]
  - Renal failure [Unknown]
  - Product use in unapproved indication [Unknown]
  - Off label use [Unknown]

NARRATIVE: CASE EVENT DATE: 20220621
